FAERS Safety Report 7759642-8 (Version None)
Quarter: 2011Q3

REPORT INFORMATION
  Report Type: 
  Country: None (occurrence: None)
  Receive Date: 20110919
  Receipt Date: 20110909
  Transmission Date: 20111222
  Serious: Yes (Hospitalization)
  Sender: FDA-Public Use
  Company Number: JP-ROCHE-802767

PATIENT
  Sex: Female

DRUGS (4)
  1. PREDNISOLONE [Concomitant]
     Route: 048
     Dates: end: 20090821
  2. PREDNISOLONE [Concomitant]
     Route: 048
     Dates: start: 20090822
  3. ACTEMRA [Suspect]
     Indication: RHEUMATOID ARTHRITIS
     Dosage: 4804536MG
     Route: 041
     Dates: start: 20090126, end: 20101126
  4. ACTEMRA [Suspect]
     Route: 041
     Dates: start: 20110119

REACTIONS (4)
  - PYREXIA [None]
  - ABDOMINAL PAIN UPPER [None]
  - NAUSEA [None]
  - VOMITING [None]
